FAERS Safety Report 14418859 (Version 2)
Quarter: 2018Q1

REPORT INFORMATION
  Report Type: Spontaneous
  Country: US (occurrence: US)
  Receive Date: 20180122
  Receipt Date: 20180124
  Transmission Date: 20180509
  Serious: No
  Sender: FDA-Public Use
  Company Number: US-TEVA-2017-US-842182

PATIENT
  Sex: Female

DRUGS (3)
  1. CLOTRIMAZOLE. [Suspect]
     Active Substance: CLOTRIMAZOLE
     Indication: VULVOVAGINAL DISCOMFORT
     Route: 067
  2. BUMETANIDE. [Concomitant]
     Active Substance: BUMETANIDE
  3. K-DUR [Concomitant]
     Active Substance: POTASSIUM CHLORIDE

REACTIONS (1)
  - Drug ineffective [Unknown]
